FAERS Safety Report 5017856-4 (Version None)
Quarter: 2006Q2

REPORT INFORMATION
  Report Type: 
  Country: None (occurrence: None)
  Receive Date: 20060605
  Receipt Date: 20060530
  Transmission Date: 20061013
  Serious: Yes (Other)
  Sender: FDA-Public Use
  Company Number: JP-AVENTIS-200611658JP

PATIENT
  Sex: Female

DRUGS (1)
  1. TAXOTERE [Suspect]
     Route: 041

REACTIONS (1)
  - RHABDOMYOLYSIS [None]
